FAERS Safety Report 17555968 (Version 3)
Quarter: 2020Q1

REPORT INFORMATION
  Report Type: Report from Study
  Country: None (occurrence: IL)
  Receive Date: 20200318
  Receipt Date: 20200326
  Transmission Date: 20200409
  Serious: Yes (Hospitalization, Other)
  Sender: FDA-Public Use
  Company Number: IL-ABBVIE-20K-082-3302400-00

PATIENT
  Sex: Male

DRUGS (5)
  1. DUODOPA [Suspect]
     Active Substance: CARBIDOPA\LEVODOPA
     Dosage: CURRENT CONTINOUS MORNING 5ML/HOUR, ED 1.5 ML
     Route: 050
     Dates: start: 202002, end: 202002
  2. DUODOPA [Suspect]
     Active Substance: CARBIDOPA\LEVODOPA
     Dosage: CURRENT: MORNING 14 ML, CONTINUOUS RATE 4.3 ML, ED 1.8 ML
     Route: 050
     Dates: start: 202002, end: 202002
  3. DUODOPA [Suspect]
     Active Substance: CARBIDOPA\LEVODOPA
     Indication: PARKINSON^S DISEASE
     Dosage: CMD:-14 ML, CCD:- 4.3ML/HR, CED:- 1.8 ML
     Route: 050
     Dates: start: 20200209, end: 202002
  4. DUODOPA [Suspect]
     Active Substance: CARBIDOPA\LEVODOPA
     Dosage: CURRENT MD- 14 ML, CURRENT CR- 4.3 ML/ HOUR,?CURRENT ED- 1.8 ML
     Route: 050
     Dates: start: 20200209
  5. DUODOPA [Suspect]
     Active Substance: CARBIDOPA\LEVODOPA
     Dosage: CURRENT: MORNING 14 ML, CONTINUOUS RATE 4 ML, ED 1.5 ML
     Route: 050
     Dates: start: 202002, end: 202002

REACTIONS (4)
  - Freezing phenomenon [Unknown]
  - Tremor [Unknown]
  - Pneumonia streptococcal [Unknown]
  - Dyskinesia [Unknown]

NARRATIVE: CASE EVENT DATE: 2020
